FAERS Safety Report 16467300 (Version 1)
Quarter: 2019Q2

REPORT INFORMATION
  Report Type: Spontaneous
  Country: US (occurrence: US)
  Receive Date: 20190624
  Receipt Date: 20190624
  Transmission Date: 20190711
  Serious: Yes (Hospitalization)
  Sender: FDA-Public Use
  Company Number: US-HIKMA PHARMACEUTICALS USA INC.-US-H14001-19-03996

PATIENT
  Age: 61 Year
  Sex: Female

DRUGS (1)
  1. DIGOXIN. [Suspect]
     Active Substance: DIGOXIN
     Indication: ATRIAL FIBRILLATION
     Route: 065

REACTIONS (5)
  - Drug level above therapeutic [Recovered/Resolved]
  - Acute kidney injury [Unknown]
  - Toxicity to various agents [Unknown]
  - Ascites [Unknown]
  - Treatment noncompliance [Recovered/Resolved]
